FAERS Safety Report 4539294-0 (Version None)
Quarter: 2004Q4

REPORT INFORMATION
  Report Type: 
  Country: None (occurrence: None)
  Receive Date: 20041228
  Receipt Date: 20041222
  Transmission Date: 20050328
  Serious: Yes (Other)
  Sender: FDA-Public Use
  Company Number: PHBS2004JP17256

PATIENT
  Age: 72 Year
  Sex: Female

DRUGS (5)
  1. SEROQUEL [Suspect]
  2. TECIPUL [Concomitant]
  3. SEPAZON [Concomitant]
  4. AMOBAN [Concomitant]
  5. RITALIN [Suspect]
     Indication: DEPRESSION
     Dosage: UNK, UNK
     Route: 048
     Dates: start: 20040701

REACTIONS (1)
  - PANCYTOPENIA [None]
